FAERS Safety Report 7494988-2 (Version None)
Quarter: 2011Q2

REPORT INFORMATION
  Report Type: 
  Country: None (occurrence: None)
  Receive Date: 20110520
  Receipt Date: 20110517
  Transmission Date: 20111010
  Serious: Yes (Other)
  Sender: FDA-Public Use
  Company Number: US-ROXANE LABORATORIES, INC.-2011-RO-00681RO

PATIENT
  Age: 58 Year
  Sex: Male

DRUGS (4)
  1. ROPINIROLE [Suspect]
     Indication: RESTLESS LEGS SYNDROME
     Route: 048
  2. ASPIRIN [Concomitant]
  3. CYMBALTA [Concomitant]
     Indication: DEPRESSION
  4. SIMVASTATIN [Concomitant]

REACTIONS (5)
  - HALLUCINATION [None]
  - HOMICIDAL IDEATION [None]
  - PATHOLOGICAL GAMBLING [None]
  - LOSS OF EMPLOYMENT [None]
  - INSOMNIA [None]
